FAERS Safety Report 13016793 (Version 2)
Quarter: 2017Q1

REPORT INFORMATION
  Report Type: Spontaneous
  Country: US (occurrence: US)
  Receive Date: 20161212
  Receipt Date: 20170130
  Transmission Date: 20170428
  Serious: Yes (Other)
  Sender: FDA-Public Use
  Company Number: US-AMGEN-USASP2016155409

PATIENT
  Age: 81 Year
  Sex: Female
  Weight: 63.39 kg

DRUGS (4)
  1. GUAIFENESIN. [Concomitant]
     Active Substance: GUAIFENESIN
  2. AMOXICILLIN. [Concomitant]
     Active Substance: AMOXICILLIN
  3. PROLIA [Suspect]
     Active Substance: DENOSUMAB
     Indication: OSTEOPOROSIS POSTMENOPAUSAL
     Dosage: UNK, Q6MO
     Route: 065
     Dates: start: 20161028
  4. PROLIA [Suspect]
     Active Substance: DENOSUMAB
     Indication: OSTEOPOROSIS

REACTIONS (11)
  - Hypertension [Recovered/Resolved]
  - Butterfly rash [Recovered/Resolved]
  - Dry skin [Unknown]
  - Facial pain [Recovered/Resolved]
  - Feeling jittery [Unknown]
  - Rash macular [Unknown]
  - Dyspnoea [Recovered/Resolved]
  - Feeling hot [Unknown]
  - Dermatitis [Unknown]
  - Sinus congestion [Unknown]
  - Erythema [Unknown]

NARRATIVE: CASE EVENT DATE: 2016
